FAERS Safety Report 10553160 (Version 4)
Quarter: 2014Q4

REPORT INFORMATION
  Report Type: Report from Study
  Country: FR (occurrence: FR)
  Receive Date: 20141030
  Receipt Date: 20141128
  Transmission Date: 20150529
  Serious: Yes (Hospitalization)
  Sender: FDA-Public Use
  Company Number: FR-AMGEN-FRANI2014083439

PATIENT
  Age: 66 Year
  Sex: Male
  Weight: 80 kg

DRUGS (10)
  1. ETANERCEPT [Suspect]
     Active Substance: ETANERCEPT
     Indication: PSORIASIS
     Dosage: 50 MG, QWK
     Route: 058
     Dates: start: 20140530, end: 20141005
  2. RUPATADINE FUMARATE [Concomitant]
     Active Substance: RUPATADINE FUMARATE
     Dosage: 30 MG, 1X/DAY
     Route: 048
     Dates: start: 2010
  3. DAFALGAN CODEINE [Concomitant]
     Active Substance: ACETAMINOPHEN\CODEINE PHOSPHATE
     Dosage: 500/30 MG AS NEEDED
     Route: 048
  4. OMEPRAZOLE. [Concomitant]
     Active Substance: OMEPRAZOLE
     Dosage: 10 MG, 1X/DAY
     Route: 048
     Dates: start: 201207
  5. BIPRETERAX                         /01421201/ [Concomitant]
     Active Substance: INDAPAMIDE\PERINDOPRIL ERBUMINE
     Dosage: 10/2.5 MG IN THE MORNING
     Route: 048
     Dates: start: 201207
  6. KETOPROFEN. [Concomitant]
     Active Substance: KETOPROFEN
     Indication: BACK PAIN
     Dosage: 100 MG, AS NEEDED
     Route: 048
     Dates: end: 20141004
  7. VERAPAMIL HYDROCHLOIRDE [Concomitant]
     Dosage: 240 MG, 1X/DAY
     Route: 048
     Dates: start: 2012
  8. COLCHICINE. [Concomitant]
     Active Substance: COLCHICINE
     Dosage: UNK UNK, QD
     Route: 048
  9. BICARBONATE SODIUM [Concomitant]
     Dosage: 1 DF, 1X/DAY
     Route: 048
  10. SALBUTAMOL SULFATE [Concomitant]
     Active Substance: ALBUTEROL SULFATE
     Dosage: 100 UNK, TID
     Route: 048

REACTIONS (2)
  - Colitis ischaemic [Recovering/Resolving]
  - Peritonitis [Recovering/Resolving]

NARRATIVE: CASE EVENT DATE: 20141005
